FAERS Safety Report 4346590-9 (Version None)
Quarter: 2004Q1

REPORT INFORMATION
  Report Type: 
  Country: None (occurrence: None)
  Receive Date: 20040325
  Receipt Date: 20031224
  Transmission Date: 20041129
  Serious: No
  Sender: FDA-Public Use
  Company Number: USA030537549

PATIENT
  Age: 77 Year
  Sex: Female
  Weight: 34 kg

DRUGS (2)
  1. FORTEO [Suspect]
     Indication: DRUG INEFFECTIVE
     Dates: start: 20020101
  2. FORTEO [Suspect]
     Indication: OSTEOPOROSIS
     Dates: start: 20020101

REACTIONS (5)
  - BLOOD CALCIUM INCREASED [None]
  - BODY HEIGHT DECREASED [None]
  - CATARACT [None]
  - MUSCLE CRAMP [None]
  - PAIN IN EXTREMITY [None]
